FAERS Safety Report 10177099 (Version 2)
Quarter: 2014Q2

REPORT INFORMATION
  Report Type: Report from Study
  Country: US (occurrence: US)
  Receive Date: 20140516
  Receipt Date: 20140605
  Transmission Date: 20141212
  Serious: Yes (Other)
  Sender: FDA-Public Use
  Company Number: US-ACTELION-A-US2014-98755

PATIENT
  Age: 57 Year
  Sex: Female

DRUGS (2)
  1. TRACLEER [Suspect]
     Indication: COR PULMONALE CHRONIC
     Dosage: UNK
     Route: 048
     Dates: start: 20080602
  2. COUMADIN [Concomitant]

REACTIONS (3)
  - Cerebrovascular accident [Unknown]
  - Tachycardia [Unknown]
  - Dyspnoea exertional [Unknown]
